FAERS Safety Report 20855427 (Version 1)
Quarter: 2022Q2

REPORT INFORMATION
  Report Type: Spontaneous
  Country: US (occurrence: None)
  Receive Date: 20220519
  Receipt Date: 20220519
  Transmission Date: 20220721
  Serious: Yes (Disabling, Other)
  Sender: FDA-Public Use
  Company Number: None

PATIENT
  Age: 27 Year
  Sex: Female
  Weight: 58.5 kg

DRUGS (3)
  1. AIMOVIG (ERENUMAB) [Suspect]
     Active Substance: ERENUMAB
     Indication: Migraine prophylaxis
     Dosage: OTHER FREQUENCY : ONCE EVERY 28 DAYS;?
     Route: 058
     Dates: start: 20210413, end: 20220204
  2. NURTEC ODT [Concomitant]
     Active Substance: RIMEGEPANT SULFATE
  3. IMITREX [Concomitant]
     Active Substance: SUMATRIPTAN SUCCINATE

REACTIONS (26)
  - Fatigue [None]
  - Nausea [None]
  - Decreased appetite [None]
  - Heart rate increased [None]
  - Anxiety [None]
  - Aphasia [None]
  - Thinking abnormal [None]
  - Memory impairment [None]
  - Vertigo [None]
  - Illness [None]
  - Hunger [None]
  - Dysphemia [None]
  - Peripheral coldness [None]
  - Peripheral coldness [None]
  - Dry skin [None]
  - Motion sickness [None]
  - Palpitations [None]
  - Impaired work ability [None]
  - Tension headache [None]
  - Disturbance in attention [None]
  - Hypersomnia [None]
  - Renal pain [None]
  - Mental disorder [None]
  - Fear [None]
  - Communication disorder [None]
  - Loss of personal independence in daily activities [None]

NARRATIVE: CASE EVENT DATE: 20210601
